FAERS Safety Report 5671463-9 (Version None)
Quarter: 2008Q1

REPORT INFORMATION
  Report Type: 
  Country: None (occurrence: None)
  Receive Date: 20080313
  Receipt Date: 20070710
  Transmission Date: 20080703
  Serious: Yes (Hospitalization)
  Sender: FDA-Public Use
  Company Number: MK-6035712

PATIENT
  Sex: Male

DRUGS (7)
  1. RANITIDINE HYDROCHLORIDE [Suspect]
     Indication: OESOPHAGEAL DISORDER
     Dosage: ; ORAL
     Route: 048
     Dates: end: 20060105
  2. KINIDIN DURULES (QUINIDINE SULFATE) [Suspect]
     Indication: DRUG USE FOR UNKNOWN INDICATION
     Dosage: 500 MG; TWICE A DAY; ORAL
     Route: 048
     Dates: end: 20060126
  3. ASTRIX 100 (NO PREF. NAME) [Suspect]
     Indication: MYOCARDIAL ISCHAEMIA
     Dosage: ; DAILY; ORAL
     Route: 048
  4. LASIX [Concomitant]
  5. KINSON [Concomitant]
  6. ANPEC SR [Concomitant]
  7. SLOW-K [Concomitant]

REACTIONS (1)
  - THROMBOCYTOPENIA [None]
